FAERS Safety Report 15321324 (Version 4)
Quarter: 2018Q4

REPORT INFORMATION
  Report Type: Spontaneous
  Country: US (occurrence: US)
  Receive Date: 20180827
  Receipt Date: 20181023
  Transmission Date: 20190204
  Serious: No
  Sender: FDA-Public Use
  Company Number: US-SA-2018SA234813

PATIENT
  Age: 32 Year
  Sex: Female

DRUGS (2)
  1. ENOXAPARIN SODIUM - WINTHROP [Suspect]
     Active Substance: ENOXAPARIN SODIUM
     Indication: CARDIOVASCULAR DISORDER
     Dosage: 0.6 UNK
     Route: 065
  2. ENOXAPARIN SODIUM - WINTHROP [Suspect]
     Active Substance: ENOXAPARIN SODIUM
     Indication: PREGNANCY
     Dosage: 0.7 ML, BID
     Route: 065

REACTIONS (3)
  - Needle issue [Unknown]
  - Device issue [Unknown]
  - Contusion [Unknown]
